FAERS Safety Report 5208934-5 (Version None)
Quarter: 2007Q1

REPORT INFORMATION
  Report Type: 
  Country: None (occurrence: None)
  Receive Date: 20070111
  Receipt Date: 20070111
  Transmission Date: 20070707
  Serious: Yes (Other)
  Sender: FDA-Public Use
  Company Number: None

PATIENT
  Age: 78 Year
  Sex: Male
  Weight: 102.5 kg

DRUGS (1)
  1. TRAVATAN [Suspect]
     Indication: GLAUCOMA
     Dosage: QS HS, 1D QS HS, OPHTHALM
     Route: 047
     Dates: start: 20060511, end: 20061102

REACTIONS (1)
  - CONJUNCTIVAL OEDEMA [None]
